FAERS Safety Report 6042184-8 (Version None)
Quarter: 2009Q1

REPORT INFORMATION
  Report Type: 
  Country: None (occurrence: None)
  Receive Date: 20090116
  Receipt Date: 20090107
  Transmission Date: 20090719
  Serious: Yes (Death)
  Sender: FDA-Public Use
  Company Number: US-AVENTIS-200910241US

PATIENT
  Age: 80 Year
  Sex: Female

DRUGS (12)
  1. TAXOTERE [Suspect]
     Route: 042
     Dates: start: 20090105
  2. CYCLOPHOSPHAMIDE [Suspect]
     Dosage: DOSE: 600MG/M2
  3. ASPIRIN [Concomitant]
     Dosage: DOSE: UNK
  4. AVAPRO [Concomitant]
     Dosage: DOSE: UNK
  5. BUPROPION HCL [Concomitant]
     Indication: DEPRESSION
     Dosage: DOSE: UNK
  6. LASIX [Concomitant]
     Dosage: DOSE: UNK
  7. THYROID PREPARATIONS [Concomitant]
     Dosage: DOSE: UNK
  8. METOPROLOL [Concomitant]
     Dosage: DOSE: UNK
  9. POTASSIUM SUPPLEMENT [Concomitant]
     Dosage: DOSE: UNK
  10. BENADRYL [Concomitant]
     Dosage: DOSE: UNK
  11. DECADRON [Concomitant]
     Dosage: DOSE: UNK
  12. ANZEMET [Concomitant]
     Dosage: DOSE: UNK

REACTIONS (9)
  - ARRHYTHMIA [None]
  - CARDIAC ARREST [None]
  - CHEST DISCOMFORT [None]
  - DYSPNOEA [None]
  - FEELING HOT [None]
  - HYPOTENSION [None]
  - OXYGEN SATURATION DECREASED [None]
  - PRURITUS [None]
  - SKIN DISCOLOURATION [None]
